FAERS Safety Report 19452807 (Version 1)
Quarter: 2021Q2

REPORT INFORMATION
  Report Type: Report from Study
  Country: None (occurrence: RO)
  Receive Date: 20210623
  Receipt Date: 20210623
  Transmission Date: 20210717
  Serious: Yes (Hospitalization)
  Sender: FDA-Public Use
  Company Number: RO-ABBVIE-21K-135-3956969-00

PATIENT
  Age: 40 Year
  Sex: Female

DRUGS (7)
  1. CIPRINOL [Suspect]
     Active Substance: CIPROFLOXACIN
     Indication: MUSCLE SPASMS
     Dosage: UNKNOWN
     Route: 048
  2. OSETRON [Suspect]
     Active Substance: ONDANSETRON HYDROCHLORIDE
     Indication: ABDOMINAL DISTENSION
  3. PARACETAMOL [Suspect]
     Active Substance: ACETAMINOPHEN
     Indication: MUSCLE SPASMS
     Dosage: UNKNOWN
     Route: 048
  4. OSETRON [Suspect]
     Active Substance: ONDANSETRON HYDROCHLORIDE
     Indication: MUSCLE SPASMS
     Dosage: UNKNOWN
     Route: 048
  5. HUMIRA [Suspect]
     Active Substance: ADALIMUMAB
     Indication: CROHN^S DISEASE
     Route: 058
     Dates: start: 20200615
  6. CIPRINOL [Suspect]
     Active Substance: CIPROFLOXACIN
     Indication: ABDOMINAL DISTENSION
  7. PARACETAMOL [Suspect]
     Active Substance: ACETAMINOPHEN
     Indication: ABDOMINAL DISTENSION

REACTIONS (9)
  - Abdominal pain [Recovered/Resolved]
  - Fatigue [Not Recovered/Not Resolved]
  - Hypoaesthesia oral [Recovered/Resolved]
  - Calcium metabolism disorder [Recovered/Resolved]
  - Hypoaesthesia [Recovered/Resolved]
  - Abdominal distension [Recovered/Resolved]
  - Blister [Recovered/Resolved]
  - Hypersensitivity [Recovered/Resolved]
  - Weight increased [Not Recovered/Not Resolved]

NARRATIVE: CASE EVENT DATE: 20210415
